FAERS Safety Report 12932628 (Version 1)
Quarter: 2016Q4

REPORT INFORMATION
  Report Type: Spontaneous
  Country: GB (occurrence: GB)
  Receive Date: 20161111
  Receipt Date: 20161111
  Transmission Date: 20170207
  Serious: Yes (Other)
  Sender: FDA-Public Use
  Company Number: PHHY2016GB152888

PATIENT
  Sex: Female

DRUGS (1)
  1. GILENYA [Suspect]
     Active Substance: FINGOLIMOD HYDROCHLORIDE
     Indication: PRODUCT USED FOR UNKNOWN INDICATION
     Route: 065

REACTIONS (11)
  - Intestinal haemorrhage [Unknown]
  - Transaminases increased [Unknown]
  - Abdominal pain upper [Unknown]
  - Influenza [Unknown]
  - Alanine aminotransferase increased [Unknown]
  - Vaginal haemorrhage [Unknown]
  - Blood alkaline phosphatase increased [Unknown]
  - Lymphocyte count decreased [Unknown]
  - Nasopharyngitis [Unknown]
  - Nasal discomfort [Unknown]
  - Oropharyngeal pain [Unknown]
